FAERS Safety Report 4567135-4 (Version None)
Quarter: 2005Q1

REPORT INFORMATION
  Report Type: 
  Country: None (occurrence: None)
  Receive Date: 20050127
  Receipt Date: 20040111
  Transmission Date: 20050727
  Serious: Yes (Hospitalization)
  Sender: FDA-Public Use
  Company Number: 187548

PATIENT
  Age: 51 Year
  Sex: Male

DRUGS (3)
  1. AVONEX [Suspect]
     Indication: MULTIPLE SCLEROSIS
     Dosage: 30 UG; QW; IM
     Route: 030
     Dates: start: 20010116
  2. PROVIGIL [Concomitant]
  3. FLOMAX [Concomitant]

REACTIONS (12)
  - BLOOD SODIUM DECREASED [None]
  - CONDITION AGGRAVATED [None]
  - DEHYDRATION [None]
  - HEART RATE INCREASED [None]
  - HYPERHIDROSIS [None]
  - LIPASE INCREASED [None]
  - MULTIPLE SCLEROSIS [None]
  - PSEUDOMONAS INFECTION [None]
  - RESPIRATORY RATE INCREASED [None]
  - SEPSIS [None]
  - URINARY TRACT INFECTION [None]
  - WHITE BLOOD CELL COUNT INCREASED [None]
